FAERS Safety Report 8351120 (Version 4)
Quarter: 2013Q1

REPORT INFORMATION
  Report Type: Spontaneous
  Country: US (occurrence: US)
  Receive Date: 20120124
  Receipt Date: 20120320
  Transmission Date: 20140127
  Serious: Yes (Death)
  Sender: FDA-Public Use
  Company Number: None

PATIENT
  Age: 69 Year
  Sex: Female

DRUGS (12)
  1. VIMPAT [Suspect]
     Route: 048
     Dates: start: 20111215, end: 20111227
  2. KEPPRA [Suspect]
     Route: 048
     Dates: start: 20100326
  3. ALPRAZOLAM [Suspect]
     Route: 048
  4. METOCLOPRAMIDE [Concomitant]
  5. KALETRA [Concomitant]
     Indication: HIV INFECTION
     Dosage: 200MG/50MGX2TABS BID
  6. LAMIVUDINE\ZIDOVUDINE [Concomitant]
     Dosage: DAILY
     Route: 048
  7. ETODOLAC [Concomitant]
     Dosage: DAILY:400MG
     Route: 048
  8. FERROUS SULFATE [Concomitant]
     Dosage: DAILY :325 MG
  9. VITIS VINIFERA SEED [Concomitant]
     Dosage: DAILY: 100MG
     Route: 048
  10. DILANTIN [Concomitant]
     Dosage: ON TAB DAILY
  11. MAGNESIUM OXIDE [Concomitant]
  12. ARICEPT [Concomitant]

REACTIONS (5)
  - Death [Fatal]
  - Toxic epidermal necrolysis [Unknown]
  - Blood pressure increased [Unknown]
  - Blood pressure inadequately controlled [None]
  - Product substitution issue [None]
